FAERS Safety Report 6707257-2 (Version None)
Quarter: 2010Q2

REPORT INFORMATION
  Report Type: 
  Country: None (occurrence: None)
  Receive Date: 20100503
  Receipt Date: 20090616
  Transmission Date: 20101027
  Serious: No
  Sender: FDA-Public Use
  Company Number: US-ASTRAZENECA-2009UW15285

PATIENT
  Age: 72 Year
  Sex: Male
  Weight: 98.4 kg

DRUGS (13)
  1. NEXIUM [Suspect]
     Route: 048
  2. ACTOS [Concomitant]
  3. SYNTHROID [Concomitant]
  4. HYTRIN [Concomitant]
  5. LOPRESSOR [Concomitant]
  6. NORVASC [Concomitant]
  7. PRAVASTATIN [Concomitant]
  8. FLONASE [Concomitant]
  9. LANTUS [Concomitant]
  10. HUMALOG [Concomitant]
  11. NIACIN [Concomitant]
  12. ASPIRIN [Concomitant]
  13. ZYRTEC [Concomitant]
     Indication: SEASONAL ALLERGY

REACTIONS (1)
  - BLOOD GLUCOSE INCREASED [None]
